FAERS Safety Report 6764827-3 (Version None)
Quarter: 2010Q2

REPORT INFORMATION
  Report Type: 
  Country: None (occurrence: None)
  Receive Date: 20100609
  Receipt Date: 20100511
  Transmission Date: 20101027
  Serious: No
  Sender: FDA-Public Use
  Company Number: 2010011620

PATIENT
  Age: 2 Year
  Sex: Female
  Weight: 13.1543 kg

DRUGS (1)
  1. CHILDREN'S ZYRTEC ALLERGY [Suspect]
     Indication: SEASONAL ALLERGY
     Dosage: AS NEED X1 DAILY, ORAL
     Route: 048
     Dates: start: 20090901, end: 20100501

REACTIONS (4)
  - COLD SWEAT [None]
  - FEELING COLD [None]
  - PRODUCT QUALITY ISSUE [None]
  - SKIN DISCOLOURATION [None]
